FAERS Safety Report 12929907 (Version 5)
Quarter: 2017Q1

REPORT INFORMATION
  Report Type: Report from Study
  Country: US (occurrence: US)
  Receive Date: 20161110
  Receipt Date: 20170317
  Transmission Date: 20170428
  Serious: Yes (Hospitalization, Other)
  Sender: FDA-Public Use
  Company Number: US-TAIHO ONCOLOGY INC-EU-2016-02104

PATIENT
  Age: 75 Year
  Sex: Female

DRUGS (8)
  1. LONSURF [Suspect]
     Active Substance: TIPIRACIL HYDROCHLORIDE\TRIFLURIDINE
     Indication: COLORECTAL CANCER METASTATIC
     Dosage: CYCLE 12 STARTED ON 10/FEB/2017
     Route: 048
     Dates: start: 201611, end: 2017
  2. CRESTOR [Concomitant]
     Active Substance: ROSUVASTATIN CALCIUM
     Indication: BLOOD CHOLESTEROL
     Dates: end: 201702
  3. OCTREOTIDE ACETATE. [Concomitant]
     Active Substance: OCTREOTIDE ACETATE
     Indication: CARCINOID TUMOUR OF THE SMALL BOWEL
     Dosage: ONE SHOT IN EACH HIP
  4. LONSURF [Suspect]
     Active Substance: TIPIRACIL HYDROCHLORIDE\TRIFLURIDINE
     Indication: COLORECTAL CANCER METASTATIC
     Route: 048
     Dates: start: 20160402, end: 201611
  5. PREDNISONE. [Concomitant]
     Active Substance: PREDNISONE
     Indication: ARTHRITIS
  6. IRON [Concomitant]
     Active Substance: IRON
     Dosage: AT HS
  7. PRILOSEC [Concomitant]
     Active Substance: OMEPRAZOLE MAGNESIUM
     Dosage: NI
  8. METOPROLOL. [Concomitant]
     Active Substance: METOPROLOL
     Indication: BLOOD PRESSURE ABNORMAL

REACTIONS (13)
  - Anaemia [Unknown]
  - Fatigue [Not Recovered/Not Resolved]
  - Cataract operation [Unknown]
  - Haemorrhage [Unknown]
  - Bladder disorder [Unknown]
  - Nasopharyngitis [Not Recovered/Not Resolved]
  - Dehydration [Unknown]
  - Frequent bowel movements [Not Recovered/Not Resolved]
  - Haemoglobin decreased [Unknown]
  - Influenza [Unknown]
  - Immunodeficiency [Unknown]
  - Liver function test increased [Unknown]
  - Diarrhoea [Not Recovered/Not Resolved]

NARRATIVE: CASE EVENT DATE: 2016
